FAERS Safety Report 5191825-6 (Version None)
Quarter: 2006Q4

REPORT INFORMATION
  Report Type: 
  Country: None (occurrence: None)
  Receive Date: 20061227
  Receipt Date: 20061213
  Transmission Date: 20070319
  Serious: Yes (Hospitalization)
  Sender: FDA-Public Use
  Company Number: SE-JNJFOC-20061204491

PATIENT
  Sex: Male
  Weight: 65 kg

DRUGS (8)
  1. BLINDED; GALANTAMINE HBR [Suspect]
     Indication: DEMENTIA ALZHEIMER'S TYPE
     Route: 048
  2. PLACEBO [Suspect]
     Indication: DEMENTIA ALZHEIMER'S TYPE
     Route: 048
  3. SOBRIL [Concomitant]
     Dosage: 5-10MG
  4. IMOVANE [Concomitant]
  5. CITALOPRAM HYDROBROMIDE [Concomitant]
  6. PARAFFIN [Concomitant]
     Route: 048
  7. ALVEDON [Concomitant]
     Indication: PAIN
  8. XYLOCAINE [Concomitant]

REACTIONS (3)
  - ARTHRALGIA [None]
  - FALL [None]
  - JOINT DISLOCATION [None]
